FAERS Safety Report 10517689 (Version 1)
Quarter: 2014Q4

REPORT INFORMATION
  Report Type: Spontaneous
  Country: US (occurrence: US)
  Receive Date: 20141014
  Receipt Date: 20141014
  Transmission Date: 20150528
  Serious: Yes (Hospitalization, Other)
  Sender: FDA-Public Use
  Company Number: US-ACTAVIS-2014-21713

PATIENT
  Age: 73 Year
  Sex: Female

DRUGS (1)
  1. FENTANYL-50 (WATSON LABORATORIES) [Suspect]
     Active Substance: FENTANYL
     Indication: NEUROPATHY PERIPHERAL
     Dosage: 1 PATCH Q72H
     Route: 062

REACTIONS (6)
  - Abnormal behaviour [Unknown]
  - Hallucination [Unknown]
  - Psychotic disorder [Unknown]
  - Dysarthria [Unknown]
  - Road traffic accident [Unknown]
  - Intentional overdose [Unknown]

NARRATIVE: CASE EVENT DATE: 201409
